FAERS Safety Report 13776122 (Version 2)
Quarter: 2017Q4

REPORT INFORMATION
  Report Type: Spontaneous
  Country: US (occurrence: US)
  Receive Date: 20170721
  Receipt Date: 20171110
  Transmission Date: 20180320
  Serious: Yes (Hospitalization)
  Sender: FDA-Public Use
  Company Number: US-PFIZER INC-2016579548

PATIENT
  Age: 55 Year
  Sex: Female
  Weight: 63.5 kg

DRUGS (3)
  1. LYRICA [Suspect]
     Active Substance: PREGABALIN
     Indication: NEUROPATHY PERIPHERAL
     Dosage: 75 MG, AS NEEDED; (ONE P.O. BID PRN)
     Route: 048
  2. LYRICA [Suspect]
     Active Substance: PREGABALIN
     Dosage: 150 MG, 2X/DAY
     Route: 048
  3. LANTUS [Concomitant]
     Active Substance: INSULIN GLARGINE
     Indication: DIABETES MELLITUS
     Dosage: 30 IU, 1X/DAY

REACTIONS (3)
  - Gangrene [Unknown]
  - Localised infection [Recovering/Resolving]
  - Blister [Unknown]

NARRATIVE: CASE EVENT DATE: 20170402
